FAERS Safety Report 7559331 (Version 2)
Quarter: 2013Q3

REPORT INFORMATION
  Report Type: Report from Study
  Country: US (occurrence: US)
  Receive Date: 20100828
  Receipt Date: 20130730
  Transmission Date: 20140515
  Serious: No
  Sender: FDA-Public Use
  Company Number: US-ABBOTT-09P-163-0592771-00

PATIENT
  Sex: Male
  Weight: 79.9 kg

DRUGS (7)
  1. NIASPAN (COATED) 750MG [Suspect]
     Indication: BLOOD TRIGLYCERIDES INCREASED
     Dates: start: 2006
  2. NIASPAN (COATED) 750MG [Suspect]
     Indication: BLOOD CHOLESTEROL INCREASED
  3. COUMADIN [Concomitant]
     Indication: AORTIC VALVE REPLACEMENT
  4. COUMADIN [Concomitant]
     Indication: AORTIC VALVE DISEASE
  5. HYDROCHLOROTHIAZIDE [Concomitant]
     Indication: PRODUCT USED FOR UNKNOWN INDICATION
  6. MULTIVITAMINS [Concomitant]
     Indication: PRODUCT USED FOR UNKNOWN INDICATION
  7. SIMVASTATIN [Concomitant]
     Indication: PRODUCT USED FOR UNKNOWN INDICATION

REACTIONS (3)
  - Flushing [Recovered/Resolved]
  - Skin burning sensation [Recovered/Resolved]
  - Generalised erythema [Recovered/Resolved]
